FAERS Safety Report 16452014 (Version 1)
Quarter: 2019Q2

REPORT INFORMATION
  Report Type: Spontaneous
  Country: US (occurrence: US)
  Receive Date: 20190619
  Receipt Date: 20190619
  Transmission Date: 20190711
  Serious: No
  Sender: FDA-Public Use
  Company Number: US-ROCHE-2163813

PATIENT
  Age: 24 Year
  Sex: Female

DRUGS (1)
  1. ACTEMRA [Suspect]
     Active Substance: TOCILIZUMAB
     Indication: PRODUCT USED FOR UNKNOWN INDICATION
     Dosage: INJ162 MG/0.9 ML
     Route: 065
     Dates: start: 20180731, end: 20180731

REACTIONS (3)
  - Injection site erythema [Unknown]
  - Injection site vesicles [Unknown]
  - Injection site irritation [Unknown]

NARRATIVE: CASE EVENT DATE: 20180731
